FAERS Safety Report 7411964-6 (Version None)
Quarter: 2011Q2

REPORT INFORMATION
  Report Type: 
  Country: None (occurrence: None)
  Receive Date: 20110408
  Receipt Date: 20110408
  Transmission Date: 20111010
  Serious: Yes (Hospitalization)
  Sender: FDA-Public Use
  Company Number: None

PATIENT
  Sex: Male
  Weight: 85.4 kg

DRUGS (5)
  1. PEG-L-ASPARAGINASE (PEG-LASPARAGINASE, ONCOSPAR) [Suspect]
     Dosage: 4980 IU
     Dates: end: 20110328
  2. DEXAMETHASONE [Suspect]
     Dosage: 140 MG
     Dates: end: 20110331
  3. DOXORUBICIN HCL [Suspect]
     Dosage: 50 MG
     Dates: end: 20110401
  4. METHOTREXATE [Suspect]
     Dosage: 15 MG
     Dates: end: 20110325
  5. VINCRISTINE SULFATE [Suspect]
     Dosage: 4 MG
     Dates: end: 20110401

REACTIONS (2)
  - FATIGUE [None]
  - HYPERGLYCAEMIA [None]
